FAERS Safety Report 12810953 (Version 8)
Quarter: 2017Q4

REPORT INFORMATION
  Report Type: Spontaneous
  Country: JP (occurrence: JP)
  Receive Date: 20161005
  Receipt Date: 20171031
  Transmission Date: 20180320
  Serious: Yes (Other)
  Sender: FDA-Public Use
  Company Number: JP-GLAXOSMITHKLINE-JP2016JPN128060

PATIENT
  Age: 5 Decade
  Sex: Female

DRUGS (1)
  1. MEPOLIZUMAB [Suspect]
     Active Substance: MEPOLIZUMAB
     Indication: ASTHMA
     Dosage: 100 MG, UNK
     Route: 058

REACTIONS (12)
  - Hypersensitivity [Recovered/Resolved]
  - Erythema [Recovering/Resolving]
  - Anaphylactic reaction [Recovered/Resolved]
  - Rash [Recovered/Resolved]
  - Feeling abnormal [Recovering/Resolving]
  - Asthma [Unknown]
  - Abdominal pain [Recovered/Resolved]
  - Drug effect incomplete [Unknown]
  - Pruritus [Recovering/Resolving]
  - Wheezing [Recovering/Resolving]
  - Nasopharyngitis [Unknown]
  - Dyspnoea [Recovering/Resolving]
